FAERS Safety Report 9778713 (Version 1)
Quarter: 2013Q4

REPORT INFORMATION
  Report Type: Spontaneous
  Country: IT (occurrence: IT)
  Receive Date: 20131223
  Receipt Date: 20131223
  Transmission Date: 20140711
  Serious: Yes (Other)
  Sender: FDA-Public Use
  Company Number: IT-SA-2013SA130743

PATIENT
  Age: 73 Year
  Sex: Female

DRUGS (5)
  1. LASIX [Suspect]
     Indication: ANURIA
     Route: 048
     Dates: start: 20130731, end: 20130802
  2. OLMESARTAN MEDOXOMIL [Concomitant]
     Route: 048
  3. VITAMIN D3 [Concomitant]
     Route: 048
  4. ESOMEPRAZOLE [Concomitant]
     Route: 048
  5. EUTIROX [Concomitant]
     Route: 048

REACTIONS (2)
  - Atrial fibrillation [Recovering/Resolving]
  - Hypokalaemia [Recovering/Resolving]
